FAERS Safety Report 10664789 (Version 1)
Quarter: 2014Q4

REPORT INFORMATION
  Report Type: Spontaneous
  Country: US (occurrence: None)
  Receive Date: 20141208
  Receipt Date: 20141208
  Transmission Date: 20150529
  Serious: No
  Sender: FDA-Public Use
  Company Number: 2014TUS007614

PATIENT
  Age: 50 Year
  Sex: Female
  Weight: 53.5 kg

DRUGS (4)
  1. BRINTELLIX [Suspect]
     Active Substance: VORTIOXETINE HYDROBROMIDE
     Indication: DEPRESSION
     Route: 048
     Dates: start: 20140807
  2. BRINTELLIX [Suspect]
     Active Substance: VORTIOXETINE HYDROBROMIDE
     Indication: VERTIGO
     Route: 048
     Dates: start: 20140807
  3. LOW DOSE BIRTH CONTROL PILL (CONTRACEPTIVES) [Concomitant]
  4. LOSARTAN [Concomitant]
     Active Substance: LOSARTAN

REACTIONS (3)
  - Pruritus [None]
  - Off label use [None]
  - Constipation [None]
